FAERS Safety Report 9200361 (Version 1)
Quarter: 2013Q1

REPORT INFORMATION
  Report Type: Spontaneous
  Country: BR (occurrence: BR)
  Receive Date: 20130329
  Receipt Date: 20130329
  Transmission Date: 20140127
  Serious: Yes (Other)
  Sender: FDA-Public Use
  Company Number: BR-PFIZER INC-2013101745

PATIENT
  Age: 78 Year
  Sex: Female

DRUGS (2)
  1. CITALOR [Suspect]
     Dosage: 20 MG, DAILY
     Route: 048
  2. AAS [Concomitant]

REACTIONS (2)
  - Convulsion [Unknown]
  - Bedridden [Not Recovered/Not Resolved]
